FAERS Safety Report 18415067 (Version 1)
Quarter: 2020Q4

REPORT INFORMATION
  Report Type: Spontaneous
  Country: DE (occurrence: DE)
  Receive Date: 20201022
  Receipt Date: 20201022
  Transmission Date: 20210114
  Serious: Yes (Other)
  Sender: FDA-Public Use
  Company Number: DE-MICRO LABS LIMITED-ML2020-03091

PATIENT
  Age: 61 Year
  Sex: Female
  Weight: 57 kg

DRUGS (2)
  1. CELECOXIB-MICRO LABS 100 MG HARTKAPSELN [Suspect]
     Active Substance: CELECOXIB
     Indication: TRIGGER FINGER
     Dosage: 1-0-1
     Route: 048
     Dates: start: 20200817, end: 20200823
  2. CELECOXIB-MICRO LABS 100 MG HARTKAPSELN [Suspect]
     Active Substance: CELECOXIB
     Indication: TENOSYNOVITIS STENOSANS

REACTIONS (10)
  - Weight decreased [Recovered/Resolved]
  - Asthenia [Recovered/Resolved]
  - Gastritis [Recovered/Resolved]
  - Blood pressure increased [Recovered/Resolved]
  - Diabetes mellitus inadequate control [Recovered/Resolved]
  - Abdominal distension [Recovered/Resolved]
  - Fatigue [Recovered/Resolved]
  - Weight increased [Recovered/Resolved]
  - Eye swelling [Recovered/Resolved]
  - Visual impairment [Recovered/Resolved]

NARRATIVE: CASE EVENT DATE: 20200819
